FAERS Safety Report 20654094 (Version 1)
Quarter: 2022Q1

REPORT INFORMATION
  Report Type: Spontaneous
  Country: BR (occurrence: BR)
  Receive Date: 20220330
  Receipt Date: 20220330
  Transmission Date: 20220423
  Serious: Yes (Death, Other)
  Sender: FDA-Public Use
  Company Number: BR-009507513-2203BRA008665

PATIENT
  Age: 42 Year
  Sex: Male

DRUGS (1)
  1. PEMBROLIZUMAB [Suspect]
     Active Substance: PEMBROLIZUMAB
     Dosage: 3 CYCLES
     Dates: start: 20211105, end: 20211217

REACTIONS (3)
  - Sepsis [Fatal]
  - Infection [Fatal]
  - COVID-19 [Fatal]
